FAERS Safety Report 17816811 (Version 2)
Quarter: 2021Q3

REPORT INFORMATION
  Report Type: Spontaneous
  Country: US (occurrence: US)
  Receive Date: 20200522
  Receipt Date: 20210719
  Transmission Date: 20211014
  Serious: Yes (Hospitalization, Other)
  Sender: FDA-Public Use
  Company Number: US-TEVA-2020-US-1239046

PATIENT
  Age: 76 Year
  Sex: Male
  Weight: 114.41 kg

DRUGS (26)
  1. VALSARTAN W/HYDROCHLOROTHIAZIDE AUROBINDO [Suspect]
     Active Substance: HYDROCHLOROTHIAZIDE\VALSARTAN
     Indication: BLOOD PRESSURE MEASUREMENT
     Dosage: 320MG/12.5MG
     Route: 048
     Dates: start: 20141022, end: 20170731
  2. NORCO [Concomitant]
     Active Substance: ACETAMINOPHEN\HYDROCODONE BITARTRATE
     Indication: PAIN
     Dosage: 10MG AS NEEDED
     Dates: start: 2014
  3. ZANTAC [Concomitant]
     Active Substance: RANITIDINE HYDROCHLORIDE
  4. VALSARTAN W/HYDROCHLOROTHIAZIDE MACLEODS [Suspect]
     Active Substance: HYDROCHLOROTHIAZIDE\VALSARTAN
     Indication: BLOOD PRESSURE MEASUREMENT
     Dosage: 320/12.5 MG, IN 2016
     Route: 048
  5. FISH OIL [Concomitant]
     Active Substance: FISH OIL
     Indication: BLOOD CHOLESTEROL
     Dates: start: 2014
  6. HCTZ [Concomitant]
     Active Substance: HYDROCHLOROTHIAZIDE
     Indication: BLOOD PRESSURE MEASUREMENT
     Dosage: ONCE PER DAY
     Dates: start: 2012, end: 2012
  7. SINGULAIR [Concomitant]
     Active Substance: MONTELUKAST SODIUM
     Indication: ASTHMA
     Dosage: 10MG ONCE PER DAY
     Dates: start: 2014
  8. CRESTOR [Concomitant]
     Active Substance: ROSUVASTATIN CALCIUM
     Indication: BLOOD CHOLESTEROL
     Dosage: 20 MG ONCE PER DAY
     Dates: start: 2014
  9. NEURONTIN [Concomitant]
     Active Substance: GABAPENTIN
     Indication: PAIN
     Dosage: 800MG ONCE PER DAY
     Dates: start: 2008
  10. LEXAPRO [Concomitant]
     Active Substance: ESCITALOPRAM OXALATE
     Indication: DEPRESSION
     Dosage: 10MG ONCE PER DAY
     Dates: start: 2008
  11. LASIX [Concomitant]
     Active Substance: FUROSEMIDE
     Indication: OEDEMA
     Dosage: 40 MG ONCE PER DAY
     Dates: start: 2014
  12. RAPAFLO [Concomitant]
     Active Substance: SILODOSIN
     Indication: BENIGN PROSTATIC HYPERPLASIA
     Dosage: 8 MILLIGRAM DAILY;
     Dates: start: 2017
  13. ASPIRIN. [Concomitant]
     Active Substance: ASPIRIN
  14. VALSARTAN W/HYDROCHLOROTHIAZIDE ACTAVIS [Suspect]
     Active Substance: HYDROCHLOROTHIAZIDE\VALSARTAN
     Indication: BLOOD PRESSURE MEASUREMENT
     Dosage: 320MG/12.5MG
     Route: 048
     Dates: start: 20150304, end: 20160518
  15. VALSARTAN W/HYDROCHLOROTHIAZIDE LUPIN [Suspect]
     Active Substance: HYDROCHLOROTHIAZIDE\VALSARTAN
     Indication: BLOOD PRESSURE MEASUREMENT
     Dosage: 320/12.5 MG, IN 2015
     Route: 048
  16. FLOMAX [Concomitant]
     Active Substance: TAMSULOSIN HYDROCHLORIDE
     Indication: BENIGN PROSTATIC HYPERPLASIA
     Dosage: 0.4MG ONCE PER DAY
     Dates: start: 2016, end: 2017
  17. RANITIDINE. [Concomitant]
     Active Substance: RANITIDINE
     Indication: GASTROOESOPHAGEAL REFLUX DISEASE
     Dosage: 150MG; 300MG ONCE PER DAY
     Dates: start: 2007
  18. PROMETHAZINE [Concomitant]
     Active Substance: PROMETHAZINE HYDROCHLORIDE
     Indication: NAUSEA
     Dosage: 50MG AS NEEDED
     Dates: start: 2008
  19. NEXIUM [Concomitant]
     Active Substance: ESOMEPRAZOLE MAGNESIUM
     Indication: GASTROOESOPHAGEAL REFLUX DISEASE
     Dosage: 40MG ONCE PER DAY
     Dates: start: 2011
  20. VALSARTAN W/HYDROCHLOROTHIAZIDE SANDOZ [Suspect]
     Active Substance: HYDROCHLOROTHIAZIDE\VALSARTAN
     Indication: BLOOD PRESSURE MEASUREMENT
     Dosage: 320/12.5 MG, IN 2014
     Route: 048
  21. TOPROL XL [Concomitant]
     Active Substance: METOPROLOL SUCCINATE
     Indication: BLOOD PRESSURE MEASUREMENT
     Dosage: 50MG ONCE PER DAY
     Dates: start: 2014
  22. VALTREX [Concomitant]
     Active Substance: VALACYCLOVIR HYDROCHLORIDE
     Indication: HERPES ZOSTER
     Dosage: 1GM ONCE PER DAY
     Dates: start: 2008
  23. VALSARTAN W/HYDROCHLOROTHIAZIDE QUALITEST [Suspect]
     Active Substance: HYDROCHLOROTHIAZIDE\VALSARTAN
     Indication: BLOOD PRESSURE MEASUREMENT
     Dosage: 320/12.5 MG, IN 2014
     Route: 048
  24. DIOVAN [Suspect]
     Active Substance: VALSARTAN
     Indication: BLOOD PRESSURE MEASUREMENT
     Route: 048
     Dates: start: 20080812, end: 20090510
  25. JANUMET [Concomitant]
     Active Substance: METFORMIN HYDROCHLORIDE\SITAGLIPTIN PHOSPHATE
     Indication: DIABETES MELLITUS
     Dosage: 50MG TWICE PER DAY
     Dates: start: 2014
  26. PROSCAR [Concomitant]
     Active Substance: FINASTERIDE
     Indication: BENIGN PROSTATIC HYPERPLASIA
     Dosage: 5MG ONCE PER DAY
     Dates: start: 2014, end: 2017

REACTIONS (4)
  - Sepsis [Recovered/Resolved]
  - Urinary tract infection [Unknown]
  - Prostatomegaly [Unknown]
  - Prostate cancer [Recovering/Resolving]

NARRATIVE: CASE EVENT DATE: 201705
